FAERS Safety Report 23536220 (Version 1)
Quarter: 2024Q1

REPORT INFORMATION
  Report Type: Spontaneous
  Country: FI (occurrence: FI)
  Receive Date: 20240219
  Receipt Date: 20240219
  Transmission Date: 20240410
  Serious: Yes (Life-Threatening)
  Sender: FDA-Public Use
  Company Number: None

PATIENT
  Age: 57 Year
  Sex: Male

DRUGS (1)
  1. RYBELSUS [Suspect]
     Active Substance: SEMAGLUTIDE
     Indication: Product used for unknown indication
     Dosage: UNK
     Route: 048
     Dates: start: 20240105, end: 20240108

REACTIONS (4)
  - Colostomy [Unknown]
  - Intestinal perforation [Unknown]
  - Diverticulitis [Unknown]
  - Abscess [Unknown]

NARRATIVE: CASE EVENT DATE: 20240105
